FAERS Safety Report 12842844 (Version 2)
Quarter: 2017Q1

REPORT INFORMATION
  Report Type: Spontaneous
  Country: US (occurrence: US)
  Receive Date: 20161013
  Receipt Date: 20170118
  Transmission Date: 20170428
  Serious: No
  Sender: FDA-Public Use
  Company Number: US-PFIZER INC-2016478264

PATIENT
  Age: 62 Year
  Sex: Female
  Weight: 59.42 kg

DRUGS (11)
  1. LOSARTAN. [Concomitant]
     Active Substance: LOSARTAN
     Dosage: UNK
     Dates: start: 2015
  2. WARFARIN [Concomitant]
     Active Substance: WARFARIN
     Indication: CARDIAC VALVE DISEASE
     Dosage: 3 MG, 1X/DAY
     Dates: start: 1974
  3. SOTALOL. [Concomitant]
     Active Substance: SOTALOL
     Indication: BLOOD PRESSURE ABNORMAL
     Dosage: 80 MG, 2X/DAY
     Dates: start: 2014
  4. LOSARTAN. [Concomitant]
     Active Substance: LOSARTAN
     Indication: BLOOD PRESSURE ABNORMAL
     Dosage: 25 MG, DAILY AT BEDTIME
  5. SOTALOL. [Concomitant]
     Active Substance: SOTALOL
     Dosage: UNK
     Dates: start: 2015
  6. CARVEDILOL. [Concomitant]
     Active Substance: CARVEDILOL
     Indication: BLOOD PRESSURE ABNORMAL
     Dosage: 3.125 MG, 2X/DAY
     Dates: start: 2014
  7. CARVEDILOL. [Concomitant]
     Active Substance: CARVEDILOL
     Dosage: UNK
     Dates: start: 2015
  8. LASIX [Concomitant]
     Active Substance: FUROSEMIDE
     Indication: FLUID RETENTION
     Dosage: 20 MG, 1X/DAY
  9. LYRICA [Suspect]
     Active Substance: PREGABALIN
     Dosage: 25 MG, 3X/DAY
     Dates: start: 20160812, end: 201611
  10. LYRICA [Suspect]
     Active Substance: PREGABALIN
     Indication: CERVICOBRACHIAL SYNDROME
     Dosage: 25 MG, 1X/DAY AT NIGHT
     Route: 048
     Dates: start: 2016
  11. SPIRONOLACTONE. [Concomitant]
     Active Substance: SPIRONOLACTONE
     Indication: BLOOD PRESSURE ABNORMAL
     Dosage: UNK
     Dates: end: 201512

REACTIONS (1)
  - Drug ineffective for unapproved indication [Not Recovered/Not Resolved]

NARRATIVE: CASE EVENT DATE: 2016
